FAERS Safety Report 25373573 (Version 1)
Quarter: 2025Q2

REPORT INFORMATION
  Report Type: Report from Study
  Country: US (occurrence: US)
  Receive Date: 20250529
  Receipt Date: 20250529
  Transmission Date: 20250716
  Serious: Yes (Other)
  Sender: Unknown Manufacturer
  Company Number: US-RHYTHM PHARMACEUTICALS, INC.-2023RHM000258

PATIENT
  Age: 30 Year
  Sex: Female

DRUGS (7)
  1. SETMELANOTIDE [Suspect]
     Active Substance: SETMELANOTIDE
     Indication: Laurence-Moon-Bardet-Biedl syndrome
     Dosage: 2 MILLIGRAM, QD
     Route: 058
     Dates: start: 20230607
  2. SETMELANOTIDE [Suspect]
     Active Substance: SETMELANOTIDE
     Dosage: 3 MILLIGRAM, QD
     Route: 058
  3. OTEZLA [Concomitant]
     Active Substance: APREMILAST
     Indication: Product used for unknown indication
     Route: 065
  4. ZYRTEC [Concomitant]
     Active Substance: CETIRIZINE HYDROCHLORIDE
     Indication: Product used for unknown indication
     Route: 065
  5. HYDROCORTISONE [Concomitant]
     Active Substance: HYDROCORTISONE
     Indication: Product used for unknown indication
     Route: 065
  6. CLOBETASOL [Concomitant]
     Active Substance: CLOBETASOL
     Indication: Product used for unknown indication
     Route: 065
  7. PROBIOTICS NOS [Concomitant]
     Active Substance: PROBIOTICS NOS
     Indication: Product used for unknown indication
     Route: 065

REACTIONS (21)
  - Renal atrophy [Not Recovered/Not Resolved]
  - Feeling hot [Recovered/Resolved]
  - Erythema [Recovered/Resolved]
  - Ocular hyperaemia [Recovered/Resolved]
  - Scar [Unknown]
  - Palpitations [Recovered/Resolved]
  - Balance disorder [Not Recovered/Not Resolved]
  - Psoriasis [Not Recovered/Not Resolved]
  - Product dose omission issue [Recovered/Resolved]
  - Product dose omission in error [Recovered/Resolved]
  - Flushing [Recovered/Resolved]
  - Hypoaesthesia [Recovered/Resolved]
  - Paraesthesia oral [Recovered/Resolved]
  - Weight increased [Not Recovered/Not Resolved]
  - Drug hypersensitivity [Recovered/Resolved]
  - Dizziness [Not Recovered/Not Resolved]
  - Skin hyperpigmentation [Not Recovered/Not Resolved]
  - Injection site mass [Not Recovered/Not Resolved]
  - Injection site erythema [Not Recovered/Not Resolved]
  - Injection site pruritus [Not Recovered/Not Resolved]
  - Skin discolouration [Unknown]

NARRATIVE: CASE EVENT DATE: 20230721
